FAERS Safety Report 20096286 (Version 1)
Quarter: 2021Q4

REPORT INFORMATION
  Report Type: Spontaneous
  Country: US (occurrence: US)
  Receive Date: 20211122
  Receipt Date: 20211122
  Transmission Date: 20220303
  Serious: No
  Sender: FDA-Public Use
  Company Number: US-ELI_LILLY_AND_COMPANY-US202111007177

PATIENT
  Sex: Male

DRUGS (1)
  1. HUMALOG [Suspect]
     Active Substance: INSULIN LISPRO
     Indication: Type 2 diabetes mellitus
     Dosage: UNK UNK, TID (ON SLIDING SCALE)
     Route: 058

REACTIONS (6)
  - Blood glucose increased [Recovering/Resolving]
  - Insulin resistance [Unknown]
  - Tremor [Unknown]
  - Muscular weakness [Unknown]
  - Hyperhidrosis [Unknown]
  - Blood glucose decreased [Unknown]
